FAERS Safety Report 15200950 (Version 2)
Quarter: 2019Q4

REPORT INFORMATION
  Report Type: Spontaneous
  Country: US (occurrence: US)
  Receive Date: 20180726
  Receipt Date: 20191004
  Transmission Date: 20200122
  Serious: Yes (Other)
  Sender: FDA-Public Use
  Company Number: US-SAKK-2018SA152056AA

PATIENT
  Age: 67 Year
  Sex: Female

DRUGS (2)
  1. LANTUS SOLOSTAR [Suspect]
     Active Substance: INSULIN GLARGINE
     Dosage: 26 U, QD
  2. LANTUS SOLOSTAR [Suspect]
     Active Substance: INSULIN GLARGINE
     Dosage: 90 U, QD

REACTIONS (5)
  - Wrong technique in product usage process [Unknown]
  - Incorrect dose administered [Unknown]
  - Haemorrhage [Unknown]
  - Memory impairment [Unknown]
  - Needle issue [Unknown]
